FAERS Safety Report 6345044-8 (Version None)
Quarter: 2009Q3

REPORT INFORMATION
  Report Type: 
  Country: None (occurrence: None)
  Receive Date: 20090909
  Receipt Date: 20090825
  Transmission Date: 20100115
  Serious: Yes (Hospitalization)
  Sender: FDA-Public Use
  Company Number: FR-BIOGENIDEC-2009BI003484

PATIENT
  Sex: Female
  Weight: 65 kg

DRUGS (2)
  1. AVONEX [Suspect]
     Indication: SECONDARY PROGRESSIVE MULTIPLE SCLEROSIS
     Route: 030
     Dates: start: 20060504, end: 20080926
  2. NEURONTIN [Concomitant]
     Indication: PAIN
     Dates: start: 20020101

REACTIONS (2)
  - COLON CANCER [None]
  - MULTIPLE SCLEROSIS RELAPSE [None]
